FAERS Safety Report 13159418 (Version 1)
Quarter: 2017Q1

REPORT INFORMATION
  Report Type: Other
  Country: DE (occurrence: DE)
  Receive Date: 20170127
  Receipt Date: 20170127
  Transmission Date: 20170428
  Serious: Yes (Hospitalization, Other)
  Sender: FDA-Public Use
  Company Number: DE-MEDAC PHARMA, INC.-1062438

PATIENT
  Age: 78 Year
  Sex: Female

DRUGS (4)
  1. ZOPICLONE [Suspect]
     Active Substance: ZOPICLONE
  2. MEMANTINE. [Concomitant]
     Active Substance: MEMANTINE
  3. METHOTREXATE. [Suspect]
     Active Substance: METHOTREXATE
     Indication: RHEUMATOID ARTHRITIS
  4. PIPAMPERONE [Suspect]
     Active Substance: PIPAMPERONE

REACTIONS (1)
  - Hypothermia [Recovered/Resolved]
